FAERS Safety Report 11349799 (Version 1)
Quarter: 2015Q3

REPORT INFORMATION
  Report Type: Spontaneous
  Country: US (occurrence: None)
  Receive Date: 20150805
  Receipt Date: 20150805
  Transmission Date: 20151125
  Serious: No
  Sender: FDA-Public Use
  Company Number: None

PATIENT
  Age: 82 Year
  Sex: Female

DRUGS (25)
  1. ACETAMINOPHEN. [Concomitant]
     Active Substance: ACETAMINOPHEN
  2. BISACODYL. [Concomitant]
     Active Substance: BISACODYL
  3. FUROSEMIDE. [Concomitant]
     Active Substance: FUROSEMIDE
  4. ISOSORBIDE DINITRATE. [Concomitant]
     Active Substance: ISOSORBIDE DINITRATE
  5. VALPROIC ACID. [Concomitant]
     Active Substance: VALPROIC ACID
  6. ASPIRIN. [Concomitant]
     Active Substance: ASPIRIN
  7. DULOXETINE. [Concomitant]
     Active Substance: DULOXETINE
  8. FERROUS SULFATE [Concomitant]
     Active Substance: FERROUS SULFATE\FERROUS SULFATE, DRIED
  9. LACOSAMIDE [Concomitant]
     Active Substance: LACOSAMIDE
  10. NICARDIPINE [Concomitant]
     Active Substance: NICARDIPINE
  11. HYDRALAZINE [Concomitant]
     Active Substance: HYDRALAZINE HYDROCHLORIDE
  12. PREDNISOLONE. [Concomitant]
     Active Substance: PREDNISOLONE
  13. POLYETHYLENE GLYCOL 3350. [Concomitant]
     Active Substance: POLYETHYLENE GLYCOL 3350
  14. SENNA [Concomitant]
     Active Substance: SENNA LEAF\SENNOSIDES\SENNOSIDES A AND B
  15. ATROPINE-DIPHENOXYLATE [Concomitant]
  16. SIMVASTATIN. [Concomitant]
     Active Substance: SIMVASTATIN
  17. THIAMINE. [Concomitant]
     Active Substance: THIAMINE
  18. KETOROLAC [Concomitant]
     Active Substance: KETOROLAC\KETOROLAC TROMETHAMINE
  19. POTASSIUM CHLORIDE. [Concomitant]
     Active Substance: POTASSIUM CHLORIDE
  20. QUETIAPINE [Concomitant]
     Active Substance: QUETIAPINE
  21. HEPARIN [Concomitant]
     Active Substance: HEPARIN SODIUM
  22. INSULIN GLARGINE [Suspect]
     Active Substance: INSULIN GLARGINE
     Indication: HYPERGLYCAEMIA
     Dosage: 8 UNITS
     Route: 058
     Dates: start: 20141216, end: 20141220
  23. CARVEDILOL. [Concomitant]
     Active Substance: CARVEDILOL
  24. LEVETIRACETAM. [Concomitant]
     Active Substance: LEVETIRACETAM
  25. RANITIDINE [Concomitant]
     Active Substance: RANITIDINE\RANITIDINE HYDROCHLORIDE

REACTIONS (1)
  - Blood glucose decreased [None]

NARRATIVE: CASE EVENT DATE: 20141220
